FAERS Safety Report 10026919 (Version 1)
Quarter: 2014Q1

REPORT INFORMATION
  Report Type: Spontaneous
  Country: DE (occurrence: None)
  Receive Date: 20140318
  Receipt Date: 20140318
  Transmission Date: 20141002
  Serious: Yes (Other)
  Sender: FDA-Public Use
  Company Number: AUR-APL-2014-02739

PATIENT
  Age: 1 Day
  Sex: Male
  Weight: 2.7 kg

DRUGS (2)
  1. LAMOTRIGINE (LAMOTRIGINE) [Suspect]
     Indication: EPILEPSY
     Dosage: 1 D
     Route: 064
     Dates: start: 20120307
  2. FOLSAURE [Concomitant]

REACTIONS (5)
  - Caesarean section [None]
  - Neonatal respiratory distress syndrome [None]
  - Restlessness [None]
  - Depression [None]
  - Foetal exposure during pregnancy [None]
